FAERS Safety Report 18381174 (Version 1)
Quarter: 2020Q4

REPORT INFORMATION
  Report Type: Spontaneous
  Country: US (occurrence: US)
  Receive Date: 20201013
  Receipt Date: 20201013
  Transmission Date: 20210114
  Serious: Yes (Other)
  Sender: FDA-Public Use
  Company Number: None

PATIENT
  Age: 85 Year
  Sex: Female
  Weight: 45 kg

DRUGS (1)
  1. WARFARIN [Suspect]
     Active Substance: WARFARIN
     Indication: FACTOR V LEIDEN MUTATION
     Route: 048

REACTIONS (3)
  - Mental status changes [None]
  - Seizure [None]
  - Fall [None]

NARRATIVE: CASE EVENT DATE: 20200923
